FAERS Safety Report 9133550 (Version 2)
Quarter: 2013Q1

REPORT INFORMATION
  Report Type: Spontaneous
  Country: US (occurrence: US)
  Receive Date: 20130115
  Receipt Date: 20130228
  Transmission Date: 20140127
  Serious: Yes (Other)
  Sender: FDA-Public Use
  Company Number: US-RB-048536-13

PATIENT
  Age: 51 Year
  Sex: Male

DRUGS (4)
  1. SUBOXONE FILM [Suspect]
     Indication: DRUG DEPENDENCE
     Dosage: SUBOXONE FILM; UNKNOWN DOSING DETAILS
     Route: 060
     Dates: start: 201204, end: 20130104
  2. SUBOXONE FILM [Suspect]
     Dosage: SUBOXONE FILM; DOSING DETAILS UNKNOWN, SELF TAPER, VARYING DOSES
     Route: 060
     Dates: start: 20130104, end: 201301
  3. SUBOXONE FILM [Suspect]
     Dosage: SUBOXONE FILM; DOSING DETAILS UNKNOWN
     Route: 060
     Dates: start: 201301
  4. SMOKES ABOUT A PACK A DAY [Concomitant]
     Dosage: 20 CIGARETTES A DAY
     Route: 055

REACTIONS (3)
  - Hepatitis C [Not Recovered/Not Resolved]
  - Rheumatoid arthritis [Not Recovered/Not Resolved]
  - Underdose [Recovered/Resolved]
